FAERS Safety Report 12655820 (Version 2)
Quarter: 2016Q4

REPORT INFORMATION
  Report Type: Spontaneous
  Country: US (occurrence: US)
  Receive Date: 20160816
  Receipt Date: 20161104
  Transmission Date: 20170207
  Serious: No
  Sender: FDA-Public Use
  Company Number: US-PFIZER INC-2016385161

PATIENT
  Age: 60 Year
  Sex: Female

DRUGS (9)
  1. SKELAXIN [Concomitant]
     Active Substance: METAXALONE
     Indication: MUSCLE DISORDER
     Dosage: 300 (UNITS NOT AVAILABLE OVER THE CALL, 6 AM IN MORNING 12 IN NOON 12AT MIDNIGHT), 3X/DAY
  2. LYRICA [Suspect]
     Active Substance: PREGABALIN
     Dosage: 75 MG, 2X/DAY
     Dates: start: 20160808
  3. MORPHINE [Concomitant]
     Active Substance: MORPHINE
     Indication: NEUROPATHY PERIPHERAL
     Dosage: 30 MG, 2X/DAY (ONE IN MORNING ONE IN NIGHT)
  4. LYRICA [Suspect]
     Active Substance: PREGABALIN
     Dosage: 50 MG, 4X/DAY
  5. BACLOFEN. [Concomitant]
     Active Substance: BACLOFEN
     Indication: MUSCLE RELAXANT THERAPY
     Dosage: UNK
  6. XANAX [Concomitant]
     Active Substance: ALPRAZOLAM
     Indication: PANIC ATTACK
     Dosage: 2 MG, 3X/DAY
  7. MORPHINE [Concomitant]
     Active Substance: MORPHINE
     Dosage: UNK
  8. SKELAXIN [Concomitant]
     Active Substance: METAXALONE
     Indication: NEUROPATHY PERIPHERAL
  9. ZELIUM /00505202/ [Concomitant]
     Indication: SLEEP DISORDER
     Dosage: 10 MG, 3X/DAY

REACTIONS (3)
  - Somnolence [Recovered/Resolved]
  - Constipation [Unknown]
  - Hepatic function abnormal [Unknown]
